FAERS Safety Report 16960934 (Version 1)
Quarter: 2019Q4

REPORT INFORMATION
  Report Type: Spontaneous
  Country: HR (occurrence: HR)
  Receive Date: 20191025
  Receipt Date: 20191025
  Transmission Date: 20200122
  Serious: Yes (Hospitalization)
  Sender: FDA-Public Use
  Company Number: HR-TEVA-2019-HR-1128731

PATIENT
  Age: 16 Year
  Sex: Male

DRUGS (2)
  1. MELPHALAN. [Suspect]
     Active Substance: MELPHALAN
     Indication: CHEMOTHERAPY
     Dosage: 269MG OF MELPHALAN (140 MG/M2 IV ON DAY-2)
     Route: 042
  2. BUSULFAN. [Suspect]
     Active Substance: BUSULFAN
     Indication: CHEMOTHERAPY
     Dosage: 1216MG (633 MG/M2) OF ORAL BUSULFAN (1 MG/KG/DOSE, 4 TIMES DAILY, FROM DAY-6 TO DAY-3)
     Route: 048

REACTIONS (4)
  - Lung disorder [Recovered/Resolved]
  - Traumatic lung injury [Recovered/Resolved]
  - Systolic hypertension [Recovered/Resolved]
  - Pulmonary hypertension [Recovered/Resolved]
